FAERS Safety Report 11369465 (Version 1)
Quarter: 2015Q3

REPORT INFORMATION
  Report Type: Spontaneous
  Country: US (occurrence: US)
  Receive Date: 20150812
  Receipt Date: 20150812
  Transmission Date: 20151125
  Serious: No
  Sender: FDA-Public Use
  Company Number: US-JNJFOC-20150713070

PATIENT
  Sex: Male

DRUGS (1)
  1. NUCYNTA ER [Suspect]
     Active Substance: TAPENTADOL HYDROCHLORIDE
     Indication: NEUROPATHY PERIPHERAL
     Route: 048
     Dates: start: 201409

REACTIONS (2)
  - Tooth disorder [Recovered/Resolved]
  - Alveolar osteitis [Recovered/Resolved]
